FAERS Safety Report 5201431-2 (Version None)
Quarter: 2007Q1

REPORT INFORMATION
  Report Type: 
  Country: None (occurrence: None)
  Receive Date: 20070108
  Receipt Date: 20061228
  Transmission Date: 20070707
  Serious: Yes (Death, Life-Threatening, Disabling, Other)
  Sender: FDA-Public Use
  Company Number: AU-PFIZER INC-2007000070

PATIENT
  Sex: Male
  Weight: 78 kg

DRUGS (10)
  1. LYRICA [Suspect]
     Indication: POST HERPETIC NEURALGIA
     Route: 048
     Dates: start: 20060615, end: 20060621
  2. NEURONTIN [Suspect]
  3. TRITACE [Concomitant]
  4. CITALOPRAM HYDROBROMIDE [Concomitant]
  5. NEXIUM [Concomitant]
  6. PERIACTIN [Concomitant]
  7. ROCALTROL [Concomitant]
  8. ACTRAPID [Concomitant]
  9. TRAMADOL HCL [Concomitant]
  10. HYPNODORM [Concomitant]

REACTIONS (7)
  - AGITATION [None]
  - CONFUSIONAL STATE [None]
  - COORDINATION ABNORMAL [None]
  - DYSKINESIA [None]
  - FACE OEDEMA [None]
  - FALL [None]
  - HIP FRACTURE [None]
